FAERS Safety Report 24303899 (Version 2)
Quarter: 2024Q4

REPORT INFORMATION
  Report Type: Spontaneous
  Country: US (occurrence: US)
  Receive Date: 20240910
  Receipt Date: 20241211
  Transmission Date: 20250114
  Serious: No
  Sender: PFIZER
  Company Number: US-PFIZER INC-PV202400117675

PATIENT
  Age: 55 Year
  Sex: Female

DRUGS (1)
  1. TUKYSA [Suspect]
     Active Substance: TUCATINIB
     Dosage: 150MG; 2 TABLETS TWICE DAILY
     Route: 048

REACTIONS (4)
  - Skin discolouration [Unknown]
  - Food intolerance [Unknown]
  - Memory impairment [Unknown]
  - Confusional state [Unknown]
